APPROVED DRUG PRODUCT: CEFAZOLIN SODIUM
Active Ingredient: CEFAZOLIN SODIUM
Strength: EQ 1GM BASE/VIAL
Dosage Form/Route: INJECTABLE;INJECTION
Application: A062894 | Product #003
Applicant: BEDFORD LABORATORIES DIV BEN VENUE LABORATORIES INC
Approved: Jul 21, 1988 | RLD: No | RS: No | Type: DISCN